FAERS Safety Report 9958699 (Version 2)
Quarter: 2014Q2

REPORT INFORMATION
  Report Type: Spontaneous
  Country: AT (occurrence: None)
  Receive Date: 20140228
  Receipt Date: 20140401
  Transmission Date: 20141212
  Serious: Yes (Other)
  Sender: FDA-Public Use
  Company Number: 2014018971

PATIENT
  Sex: Male

DRUGS (3)
  1. FRAGMIN [Suspect]
     Indication: VENOUS THROMBOSIS LIMB
     Dosage: AT 10000 TO 12500 IU
     Dates: start: 20130926, end: 20140120
  2. KEPPRA (LEVETIRACETAM) [Concomitant]
  3. FENOLIP (FENOFIBRATE) [Concomitant]

REACTIONS (2)
  - Blood triglycerides increased [None]
  - Blood cholesterol increased [None]
